FAERS Safety Report 18360761 (Version 4)
Quarter: 2023Q2

REPORT INFORMATION
  Report Type: Other
  Country: PT (occurrence: PT)
  Receive Date: 20201008
  Receipt Date: 20230621
  Transmission Date: 20230721
  Serious: Yes (Life-Threatening, Hospitalization, Other)
  Sender: FDA-Public Use
  Company Number: PT-MACLEODS PHARMACEUTICALS US LTD-MAC2020028346

PATIENT

DRUGS (4)
  1. ESCITALOPRAM [Suspect]
     Active Substance: ESCITALOPRAM OXALATE
     Indication: Schizophrenia
     Dosage: UNK
     Route: 065
  2. OLANZAPINE [Interacting]
     Active Substance: OLANZAPINE
     Indication: Schizophrenia
     Dosage: UNK
     Route: 065
  3. BIPERIDEN HYDROCHLORIDE [Interacting]
     Active Substance: BIPERIDEN HYDROCHLORIDE
     Indication: Schizophrenia
     Dosage: UNK
     Route: 065
  4. CLOZAPINE [Interacting]
     Active Substance: CLOZAPINE
     Indication: Schizophrenia
     Dosage: UNK
     Route: 065

REACTIONS (5)
  - Colitis ischaemic [Recovered/Resolved]
  - Shock [Unknown]
  - Depressed level of consciousness [Unknown]
  - Abdominal pain [Unknown]
  - Drug interaction [Unknown]
